FAERS Safety Report 5877544-9 (Version None)
Quarter: 2008Q3

REPORT INFORMATION
  Report Type: 
  Country: None (occurrence: None)
  Receive Date: 20080911
  Receipt Date: 20080902
  Transmission Date: 20090109
  Serious: Yes (Other)
  Sender: FDA-Public Use
  Company Number: PHEH2008US07818

PATIENT
  Sex: Female

DRUGS (4)
  1. PROLEUKIN [Suspect]
     Indication: NON-SMALL CELL LUNG CANCER
     Dosage: 1.375 MILLION UNITS FIVE DAYS PER WEEK (MON-FRI)
     Dates: start: 20080820
  2. ATENOLOL [Concomitant]
  3. ASPIRIN [Concomitant]
  4. VITAMIN B-12 [Concomitant]

REACTIONS (1)
  - CORNEAL DISORDER [None]
